FAERS Safety Report 5034469-9 (Version None)
Quarter: 2006Q2

REPORT INFORMATION
  Report Type: 
  Country: None (occurrence: None)
  Receive Date: 20060620
  Receipt Date: 20060609
  Transmission Date: 20061013
  Serious: Yes (Hospitalization)
  Sender: FDA-Public Use
  Company Number: 2005-02502

PATIENT
  Age: 61 Year
  Sex: Female

DRUGS (7)
  1. VELCADE [Suspect]
     Indication: MULTIPLE MYELOMA
     Dosage: 4.40 MG INTRAVENOUS
     Route: 042
     Dates: start: 20051128, end: 20051201
  2. DEXAMETHASONE [Suspect]
     Indication: MULTIPLE MYELOMA
     Dosage: 40.00 MG ORAL
     Route: 048
     Dates: start: 20051128, end: 20051201
  3. ADRIAMYCIN PFS [Suspect]
     Indication: MULTIPLE MYELOMA
     Dosage: 60.00 MG ORAL
     Route: 048
     Dates: start: 20051128, end: 20051201
  4. ESOMEPRAZOLE MAGNESIUM [Concomitant]
  5. SIMVASTATIN [Concomitant]
  6. METOPROLOL TARTRATE [Concomitant]
  7. ENALAPRIL MALEATE [Concomitant]

REACTIONS (5)
  - ABDOMINAL PAIN [None]
  - DIARRHOEA HAEMORRHAGIC [None]
  - ENTEROVIRUS INFECTION [None]
  - MUCOSAL INFLAMMATION [None]
  - ORAL INTAKE REDUCED [None]
